FAERS Safety Report 7030248-1 (Version None)
Quarter: 2010Q4

REPORT INFORMATION
  Report Type: 
  Country: None (occurrence: None)
  Receive Date: 20101001
  Receipt Date: 20100915
  Transmission Date: 20110411
  Serious: Yes (Other)
  Sender: FDA-Public Use
  Company Number: ACO_02245_2010

PATIENT
  Age: 54 Year
  Sex: Female

DRUGS (2)
  1. AMPYRA [Suspect]
     Indication: GAIT DISTURBANCE
     Dosage: (10 MG BID ORAL)
     Route: 048
     Dates: start: 20100527, end: 20100722
  2. TYSABRI [Concomitant]

REACTIONS (13)
  - ASTHENIA [None]
  - BALANCE DISORDER [None]
  - CONSTIPATION [None]
  - DIZZINESS [None]
  - DYSPEPSIA [None]
  - HEADACHE [None]
  - MULTIPLE SCLEROSIS RELAPSE [None]
  - NASAL DISCOMFORT [None]
  - NAUSEA [None]
  - OROPHARYNGEAL PAIN [None]
  - PRURITUS [None]
  - SENSORY DISTURBANCE [None]
  - THROAT IRRITATION [None]
